FAERS Safety Report 5414082-1 (Version None)
Quarter: 2007Q3

REPORT INFORMATION
  Report Type: 
  Country: None (occurrence: None)
  Receive Date: 20070814
  Receipt Date: 20070806
  Transmission Date: 20080115
  Serious: Yes (Hospitalization)
  Sender: FDA-Public Use
  Company Number: US-ELI_LILLY_AND_COMPANY-US200708001192

PATIENT
  Age: 61 Year
  Sex: Female
  Weight: 95.691 kg

DRUGS (6)
  1. BYETTA [Suspect]
     Indication: TYPE 2 DIABETES MELLITUS
     Dosage: 5 UG, 2/D
     Route: 058
     Dates: start: 20070701, end: 20070701
  2. BYETTA [Suspect]
     Dosage: 10 UG, 2/D
     Route: 058
     Dates: start: 20070701
  3. METFORMIN HCL [Concomitant]
     Indication: DIABETES MELLITUS
     Dosage: UNK, UNKNOWN
  4. GLIPIZIDE [Concomitant]
     Indication: DIABETES MELLITUS
     Dosage: UNK, UNKNOWN
  5. AVANDIA [Concomitant]
     Dosage: UNK, UNKNOWN
  6. INSULIN [Concomitant]
     Dosage: UNK, UNKNOWN
     Dates: start: 20070701, end: 20070701

REACTIONS (4)
  - CHEST PAIN [None]
  - NAUSEA [None]
  - PRURITUS [None]
  - WEIGHT DECREASED [None]
